FAERS Safety Report 20301540 (Version 2)
Quarter: 2022Q1

REPORT INFORMATION
  Report Type: Spontaneous
  Country: US (occurrence: None)
  Receive Date: 20220105
  Receipt Date: 20220118
  Transmission Date: 20220423
  Serious: No
  Sender: FDA-Public Use
  Company Number: 2022A006705

PATIENT
  Age: 728 Month
  Sex: Female
  Weight: 103 kg

DRUGS (2)
  1. BUDESONIDE\FORMOTEROL\GLYCOPYRRONIUM [Suspect]
     Active Substance: BUDESONIDE\FORMOTEROL\GLYCOPYRRONIUM
     Indication: Multiple allergies
     Dosage: 160MCG/9MCG/4.8MCG, TWO PUFFS, TWO TIMES A DAY
     Route: 055
     Dates: start: 202111
  2. BUDESONIDE\FORMOTEROL\GLYCOPYRRONIUM [Suspect]
     Active Substance: BUDESONIDE\FORMOTEROL\GLYCOPYRRONIUM
     Indication: Dyspnoea
     Dosage: 160MCG/9MCG/4.8MCG, TWO PUFFS, TWO TIMES A DAY
     Route: 055
     Dates: start: 202111

REACTIONS (6)
  - Hypersomnia [Unknown]
  - Movement disorder [Unknown]
  - Drug dose omission by device [Unknown]
  - Product dose omission issue [Unknown]
  - Off label use [Not Recovered/Not Resolved]
  - Device delivery system issue [Unknown]

NARRATIVE: CASE EVENT DATE: 20211101
